FAERS Safety Report 4338614-X (Version None)
Quarter: 2004Q2

REPORT INFORMATION
  Report Type: 
  Country: None (occurrence: None)
  Receive Date: 20040409
  Receipt Date: 20040405
  Transmission Date: 20050107
  Serious: Yes (Death)
  Sender: FDA-Public Use
  Company Number: US-JNJFOC-20040401027

PATIENT
  Age: 81 Year
  Sex: Male

DRUGS (1)
  1. SPORANOX [Suspect]
     Dosage: ORAL
     Route: 048

REACTIONS (2)
  - FUNGAL INFECTION [None]
  - LUNG INFECTION [None]
